FAERS Safety Report 18936929 (Version 3)
Quarter: 2021Q2

REPORT INFORMATION
  Report Type: Report from Study
  Country: US (occurrence: US)
  Receive Date: 20210224
  Receipt Date: 20210511
  Transmission Date: 20210717
  Serious: Yes (Other)
  Sender: FDA-Public Use
  Company Number: US-TAKEDA-US201913801

PATIENT
  Age: 59 Year
  Sex: Female

DRUGS (1)
  1. HUMAN IMMUNOGLOBULIN; HYALURONIDASE [Suspect]
     Active Substance: HUMAN IMMUNOGLOBULIN G\HYALURONIDASE RECOMBINANT HUMAN
     Indication: IMMUNODEFICIENCY COMMON VARIABLE
     Dosage: UNK
     Route: 065
     Dates: start: 20190916

REACTIONS (10)
  - Infusion site erythema [Unknown]
  - Infusion site irritation [Unknown]
  - Hypersensitivity [Unknown]
  - Incorrect product administration duration [Unknown]
  - Infusion site pain [Unknown]
  - Illness [Unknown]
  - Sensitive skin [Unknown]
  - Sinus congestion [Unknown]
  - COVID-19 pneumonia [Recovered/Resolved]
  - Infusion site discomfort [Unknown]

NARRATIVE: CASE EVENT DATE: 20210201
